FAERS Safety Report 17162311 (Version 6)
Quarter: 2020Q1

REPORT INFORMATION
  Report Type: Report from Study
  Country: ZA (occurrence: ZA)
  Receive Date: 20191217
  Receipt Date: 20200226
  Transmission Date: 20200409
  Serious: Yes (Other)
  Sender: FDA-Public Use
  Company Number: ZA-ROCHE-2498022

PATIENT
  Age: 24 Year
  Sex: Female

DRUGS (2)
  1. XOLAIR [Suspect]
     Active Substance: OMALIZUMAB
     Indication: CHRONIC SPONTANEOUS URTICARIA
     Route: 058
     Dates: start: 20191226
  2. XOLAIR [Suspect]
     Active Substance: OMALIZUMAB
     Indication: CHRONIC SPONTANEOUS URTICARIA
     Route: 058
     Dates: start: 20191204

REACTIONS (16)
  - Fatigue [Recovering/Resolving]
  - Pruritus [Unknown]
  - Lip swelling [Unknown]
  - Urticaria [Recovering/Resolving]
  - Heart rate increased [Recovering/Resolving]
  - Swelling [Unknown]
  - Rash [Unknown]
  - Swelling of eyelid [Unknown]
  - Swelling face [Unknown]
  - Peripheral swelling [Recovering/Resolving]
  - Discomfort [Recovering/Resolving]
  - Seasonal allergy [Unknown]
  - Angioedema [Recovering/Resolving]
  - Pain [Recovered/Resolved]
  - Insomnia [Recovering/Resolving]
  - Rhinitis allergic [Recovering/Resolving]

NARRATIVE: CASE EVENT DATE: 20191204
